FAERS Safety Report 9242180 (Version 2)
Quarter: 2013Q3

REPORT INFORMATION
  Report Type: Report from Study
  Country: DE (occurrence: DE)
  Receive Date: 20130419
  Receipt Date: 20130819
  Transmission Date: 20140515
  Serious: Yes (Hospitalization)
  Sender: FDA-Public Use
  Company Number: DE-ABBOTT-13P-062-1076399-00

PATIENT
  Age: 42 Year
  Sex: Male
  Weight: 106 kg

DRUGS (4)
  1. HUMIRA [Suspect]
     Indication: RHEUMATOID ARTHRITIS
     Route: 058
     Dates: start: 20050822
  2. CITALOPRAM [Concomitant]
     Indication: DEPRESSION
     Dates: start: 20100519
  3. PANTOZOL [Concomitant]
     Indication: PROPHYLAXIS AGAINST GASTROINTESTINAL ULCER
     Dates: start: 20121116
  4. LOTIO ALBA [Concomitant]
     Indication: HERPES ZOSTER
     Dates: start: 2013

REACTIONS (2)
  - Immunodeficiency [Unknown]
  - Herpes zoster [Recovered/Resolved]
